FAERS Safety Report 5742155-2 (Version None)
Quarter: 2008Q2

REPORT INFORMATION
  Report Type: 
  Country: None (occurrence: None)
  Receive Date: 20080515
  Receipt Date: 20080501
  Transmission Date: 20081010
  Serious: Yes (Hospitalization, Other)
  Sender: FDA-Public Use
  Company Number: MSER20080009

PATIENT
  Age: 20 Year
  Sex: Female

DRUGS (7)
  1. PERCOCET [Suspect]
     Indication: PAIN
     Dosage: PER ORAL
     Route: 048
  2. MORPHINE SULFATE [Suspect]
     Indication: ABDOMINAL PAIN
     Dosage: 90 MG, DAILY, INTRAVENOUS
     Route: 042
  3. MORPHINE SULFATE [Suspect]
     Indication: ABDOMINAL PAIN
     Dosage: 360 MG, DAILY
  4. DULOXETINE [Concomitant]
  5. LORAZEPAM [Concomitant]
  6. QUETIAPINE FUMARATE [Concomitant]
  7. CLONIDINE [Concomitant]

REACTIONS (11)
  - ABDOMINAL PAIN [None]
  - ADHESION [None]
  - CROHN'S DISEASE [None]
  - DRUG SCREEN POSITIVE [None]
  - INTESTINAL OBSTRUCTION [None]
  - NAUSEA [None]
  - NO THERAPEUTIC RESPONSE [None]
  - OVARIAN CYST [None]
  - PAIN [None]
  - REFUSAL OF TREATMENT BY PATIENT [None]
  - VOMITING [None]
